FAERS Safety Report 5482740-9 (Version None)
Quarter: 2007Q4

REPORT INFORMATION
  Report Type: 
  Country: None (occurrence: None)
  Receive Date: 20071011
  Receipt Date: 20071009
  Transmission Date: 20080405
  Serious: Yes (Hospitalization)
  Sender: FDA-Public Use
  Company Number: DEWYE387927SEP07

PATIENT

DRUGS (1)
  1. REFACTO [Suspect]
     Indication: HAEMOPHILIA
     Route: 042
     Dates: start: 20070213, end: 20070219

REACTIONS (1)
  - KNEE ARTHROPLASTY [None]
